FAERS Safety Report 6006971-4 (Version None)
Quarter: 2008Q4

REPORT INFORMATION
  Report Type: 
  Country: None (occurrence: None)
  Receive Date: 20081217
  Receipt Date: 20071206
  Transmission Date: 20090506
  Serious: No
  Sender: FDA-Public Use
  Company Number: US-ASTRAZENECA-2007UW27888

PATIENT
  Age: 75 Year
  Sex: Female
  Weight: 90.7 kg

DRUGS (4)
  1. CRESTOR [Suspect]
     Indication: BLOOD CHOLESTEROL INCREASED
     Route: 048
     Dates: start: 20071204
  2. NORVASC [Concomitant]
  3. VITAMINS [Concomitant]
  4. METOPROLOL TARTRATE [Concomitant]

REACTIONS (1)
  - VISUAL IMPAIRMENT [None]
